FAERS Safety Report 21766317 (Version 1)
Quarter: 2022Q4

REPORT INFORMATION
  Report Type: Spontaneous
  Country: JP (occurrence: JP)
  Receive Date: 20221222
  Receipt Date: 20221222
  Transmission Date: 20230112
  Serious: Yes (Life-Threatening, Hospitalization, Other)
  Sender: FDA-Public Use
  Company Number: JP-BRISTOL-MYERS SQUIBB COMPANY-2022-156538

PATIENT
  Sex: Male

DRUGS (3)
  1. YERVOY [Suspect]
     Active Substance: IPILIMUMAB
     Indication: Lung adenocarcinoma
     Dosage: DOING A CYCLE AS PER THE BOOK
     Route: 041
  2. OPDIVO [Suspect]
     Active Substance: NIVOLUMAB
     Indication: Lung adenocarcinoma
     Dosage: RUNNING A CYCLE ACCORDING TO THE BOOK, OPDIVO FOR ABOUT 40 DAYS ONCE
     Route: 041
  3. COVID-19 VACCINE [Concomitant]
     Indication: Product used for unknown indication

REACTIONS (6)
  - Taste disorder [Unknown]
  - Decreased appetite [Unknown]
  - Fall [Unknown]
  - Loss of consciousness [Unknown]
  - Contrast media reaction [Unknown]
  - Parosmia [Unknown]
